FAERS Safety Report 5344281-9 (Version None)
Quarter: 2007Q2

REPORT INFORMATION
  Report Type: 
  Country: None (occurrence: None)
  Receive Date: 20070604
  Receipt Date: 20070523
  Transmission Date: 20071010
  Serious: Yes (Hospitalization, Other)
  Sender: FDA-Public Use
  Company Number: CH-ELI_LILLY_AND_COMPANY-CH200705005996

PATIENT
  Age: 59 Year
  Sex: Female

DRUGS (6)
  1. CYMBALTA [Suspect]
     Dosage: 30 MG, DAILY (1/D)
     Route: 048
     Dates: start: 20061120, end: 20061126
  2. CYMBALTA [Suspect]
     Dosage: 60 MG, DAILY (1/D)
     Route: 048
     Dates: start: 20061127, end: 20070107
  3. CYMBALTA [Suspect]
     Dosage: 90 MG, DAILY (1/D)
     Route: 048
     Dates: start: 20070108, end: 20070123
  4. CYMBALTA [Suspect]
     Dosage: 30 MG, 2/D (MORNING AND NOONTIME)
     Dates: start: 20070124
  5. LEXOTANIL [Concomitant]
     Dosage: 3.75 MG, DAILY (1/D)
     Route: 048
     Dates: start: 20061117, end: 20061220
  6. LEXOTANIL [Concomitant]
     Dosage: 2.25 MG, DAILY (1/D)
     Route: 048
     Dates: start: 20061221, end: 20070117

REACTIONS (2)
  - AKATHISIA [None]
  - TREMOR [None]
